FAERS Safety Report 16822945 (Version 1)
Quarter: 2019Q3

REPORT INFORMATION
  Report Type: Report from Study
  Country: US (occurrence: US)
  Receive Date: 20190918
  Receipt Date: 20190918
  Transmission Date: 20191005
  Serious: Yes (Hospitalization)
  Sender: FDA-Public Use
  Company Number: US-CELGENEUS-USA-20190904515

PATIENT
  Age: 16 Year
  Sex: Female
  Weight: 52 kg

DRUGS (26)
  1. VENETOCLAX. [Suspect]
     Active Substance: VENETOCLAX
     Indication: NEOPLASM
     Dosage: 100 MILLIGRAM
     Route: 048
     Dates: start: 20190806, end: 20190806
  2. PROMETHAZINE [Concomitant]
     Active Substance: PROMETHAZINE HYDROCHLORIDE
     Indication: VOMITING
  3. AYGESTIN [Concomitant]
     Active Substance: NORETHINDRONE ACETATE
     Indication: MENORRHAGIA
     Dosage: 10 MILLIGRAM
     Route: 048
     Dates: start: 20190510
  4. MICAFUNGIN. [Concomitant]
     Active Substance: MICAFUNGIN SODIUM
     Indication: INFECTION
     Dosage: 150 MILLIGRAM
     Route: 041
     Dates: start: 20190726
  5. ACETAMINOPHEN. [Concomitant]
     Active Substance: ACETAMINOPHEN
     Indication: PYREXIA
  6. VENETOCLAX. [Suspect]
     Active Substance: VENETOCLAX
     Dosage: 400 MILLIGRAM
     Route: 048
     Dates: start: 20190808
  7. OLANZAPINE. [Concomitant]
     Active Substance: OLANZAPINE
     Indication: VOMITING
  8. PROMETHAZINE [Concomitant]
     Active Substance: PROMETHAZINE HYDROCHLORIDE
     Indication: NAUSEA
     Dosage: 25 MILLIGRAM
     Route: 041
     Dates: start: 20190821
  9. OMEPRAZOLE. [Concomitant]
     Active Substance: OMEPRAZOLE
     Indication: GASTROOESOPHAGEAL REFLUX DISEASE
     Dosage: 80 MILLIGRAM
     Route: 048
     Dates: start: 20190815
  10. LUPRON DEPOT [Concomitant]
     Active Substance: LEUPROLIDE ACETATE
     Indication: CONTRACEPTION
     Dosage: 11.25 MILLIGRAM
     Route: 030
     Dates: start: 20190509
  11. GRANISETRON [Concomitant]
     Active Substance: GRANISETRON
     Indication: VOMITING
  12. CHLORHEXIDINE [Concomitant]
     Active Substance: CHLORHEXIDINE
     Indication: SKIN INFECTION
     Dosage: 1 APPLICATOR
     Route: 061
     Dates: start: 20190827
  13. ALLOPURINOL. [Concomitant]
     Active Substance: ALLOPURINOL
     Indication: PROPHYLAXIS
     Dosage: 200 MILLIGRAM
     Route: 048
     Dates: start: 20190805, end: 20190810
  14. BACTRIM [Concomitant]
     Active Substance: SULFAMETHOXAZOLE\TRIMETHOPRIM
     Indication: ANTIFUNGAL PROPHYLAXIS
     Dosage: 1 TABLET
     Route: 048
     Dates: start: 20190728
  15. GRANISETRON [Concomitant]
     Active Substance: GRANISETRON
     Indication: NAUSEA
     Route: 048
  16. LEVOTHYROXINE. [Concomitant]
     Active Substance: LEVOTHYROXINE
     Indication: HYPOTHYROIDISM
     Dosage: 175 MICROGRAM
     Route: 048
     Dates: start: 20190620
  17. ACETAMINOPHEN. [Concomitant]
     Active Substance: ACETAMINOPHEN
     Indication: HEADACHE
     Route: 048
  18. AZACITIDINE. [Suspect]
     Active Substance: AZACITIDINE
     Indication: NEOPLASM
     Dosage: 75 MILLIGRAM/SQ. METER
     Route: 041
     Dates: start: 20190809
  19. VENETOCLAX. [Suspect]
     Active Substance: VENETOCLAX
     Dosage: 200 MILLIGRAM
     Route: 048
     Dates: start: 20190807, end: 20190807
  20. OLANZAPINE. [Concomitant]
     Active Substance: OLANZAPINE
     Indication: NAUSEA
     Dosage: 5 MILLIGRAM
     Route: 048
     Dates: start: 20190827
  21. DEXTROSE. [Concomitant]
     Active Substance: DEXTROSE
     Indication: PROPHYLAXIS
     Route: 041
     Dates: start: 20190805, end: 20190810
  22. LEVOTHYROXINE. [Concomitant]
     Active Substance: LEVOTHYROXINE
     Dosage: 200 MICROGRAM
     Route: 048
     Dates: start: 20190621
  23. SODIUM CHLORIDE. [Concomitant]
     Active Substance: SODIUM CHLORIDE
     Indication: PROPHYLAXIS
     Route: 041
     Dates: start: 20190805, end: 20190810
  24. SCOPOLAMINE [Concomitant]
     Active Substance: SCOPOLAMINE
     Indication: NAUSEA
     Dosage: 1 PATCH
     Route: 062
     Dates: start: 20190811, end: 20190904
  25. LORAZEPAM. [Concomitant]
     Active Substance: LORAZEPAM
     Indication: NAUSEA
     Dosage: 1 MILLIGRAM
     Route: 048
     Dates: start: 20190821
  26. LORAZEPAM. [Concomitant]
     Active Substance: LORAZEPAM
     Indication: VOMITING

REACTIONS (1)
  - Anaemia [Recovered/Resolved]

NARRATIVE: CASE EVENT DATE: 20190903
